FAERS Safety Report 5081303-7 (Version None)
Quarter: 2006Q3

REPORT INFORMATION
  Report Type: 
  Country: None (occurrence: None)
  Receive Date: 20060810
  Receipt Date: 20060728
  Transmission Date: 20061208
  Serious: Yes (Hospitalization)
  Sender: FDA-Public Use
  Company Number: 2006PV017807

PATIENT
  Age: 59 Year
  Sex: Male

DRUGS (28)
  1. BYETTA [Suspect]
     Indication: DRUG USE FOR UNKNOWN INDICATION
     Dosage: 5 MCG; BID; SC
     Route: 058
  2. KLONOPIN [Suspect]
  3. BACLOFEN [Suspect]
  4. AMBIEN [Suspect]
  5. LEXAPRO [Concomitant]
  6. LORATADINE [Concomitant]
  7. MS CONTIN [Concomitant]
  8. NEURONTIN [Concomitant]
  9. NORTRIPTYLINE HCL [Concomitant]
  10. XANAX [Concomitant]
  11. DDAVP [Concomitant]
  12. FLOMAX [Concomitant]
  13. FOLATE [Concomitant]
  14. FOSAMAX [Concomitant]
  15. GLCUOPHAGE [Concomitant]
  16. METHOTREXATE [Concomitant]
  17. MIRALAX [Concomitant]
  18. NASONEX [Concomitant]
  19. TRICOR [Concomitant]
  20. URECHOLINE [Concomitant]
  21. CIALIS [Concomitant]
  22. ATROVENT [Concomitant]
  23. ASPIRIN [Concomitant]
  24. ADVAIR DISKUS 100/50 [Concomitant]
  25. MAXALT [Concomitant]
  26. TUMS [Concomitant]
  27. NITROSTAT [Concomitant]
  28. ZOFRAN [Concomitant]

REACTIONS (10)
  - CONFUSIONAL STATE [None]
  - DISTURBANCE IN ATTENTION [None]
  - FALL [None]
  - HALLUCINATION [None]
  - MEMORY IMPAIRMENT [None]
  - METABOLIC ENCEPHALOPATHY [None]
  - PSYCHOMOTOR RETARDATION [None]
  - SOMNOLENCE [None]
  - TIBIA FRACTURE [None]
  - TOXIC INDUCED ENCEPHALOPATHY [None]
